FAERS Safety Report 17447349 (Version 3)
Quarter: 2020Q1

REPORT INFORMATION
  Report Type: Spontaneous
  Country: US (occurrence: US)
  Receive Date: 20200221
  Receipt Date: 20200226
  Transmission Date: 20200409
  Serious: Yes (Death, Hospitalization)
  Sender: FDA-Public Use
  Company Number: NVSC2020US047645

PATIENT
  Age: 79 Year
  Sex: Female

DRUGS (4)
  1. LEUCOVORIN. [Concomitant]
     Active Substance: LEUCOVORIN
     Dosage: 38 MG, Q3H
     Route: 065
  2. METHOTREXATE. [Suspect]
     Active Substance: METHOTREXATE
     Dosage: 6 DF, QD
     Route: 065
  3. LEUCOVORIN. [Concomitant]
     Active Substance: LEUCOVORIN
     Indication: PRODUCT USED FOR UNKNOWN INDICATION
     Dosage: 15 MG, Q6H
     Route: 065
  4. METHOTREXATE. [Suspect]
     Active Substance: METHOTREXATE
     Indication: ACCIDENTAL EXPOSURE TO PRODUCT
     Dosage: 2.5 MG, QW
     Route: 065

REACTIONS (12)
  - Death [Fatal]
  - Confusional state [Unknown]
  - Diarrhoea [Unknown]
  - Skin exfoliation [Unknown]
  - Vomiting [Unknown]
  - Haemorrhage [Unknown]
  - Dyspnoea [Unknown]
  - Condition aggravated [Unknown]
  - Blister [Unknown]
  - Generalised oedema [Unknown]
  - Lethargy [Unknown]
  - Asthenia [Unknown]
